FAERS Safety Report 19648436 (Version 5)
Quarter: 2021Q3

REPORT INFORMATION
  Report Type: Report from Study
  Country: BR (occurrence: BR)
  Receive Date: 20210802
  Receipt Date: 20210928
  Transmission Date: 20211014
  Serious: Yes (Hospitalization, Disabling)
  Sender: FDA-Public Use
  Company Number: NVSC2021BR169159

PATIENT
  Age: 27 Year
  Sex: Male
  Weight: 67.3 kg

DRUGS (8)
  1. DIPYRONE [Concomitant]
     Active Substance: DIPYRONE
     Indication: OSTEONECROSIS
     Dosage: UNK
     Route: 065
     Dates: start: 20210404
  2. DIPYRONE [Concomitant]
     Active Substance: DIPYRONE
     Indication: PAIN
     Dosage: UNK
     Route: 065
     Dates: start: 20210609, end: 20210609
  3. CRIZANLIZUMAB [Suspect]
     Active Substance: CRIZANLIZUMAB
     Indication: SICKLE CELL DISEASE
     Dosage: UNK
     Route: 042
     Dates: start: 20200203
  4. HYDROXYUREA. [Concomitant]
     Active Substance: HYDROXYUREA
     Indication: SICKLE CELL DISEASE
     Dosage: UNK
     Route: 065
     Dates: start: 20191026
  5. FOLIC ACID. [Concomitant]
     Active Substance: FOLIC ACID
     Indication: GENERAL PHYSICAL CONDITION
     Dosage: UNK
     Route: 065
     Dates: start: 20130628
  6. CLAVULIN [Concomitant]
     Active Substance: AMOXICILLIN\CLAVULANATE POTASSIUM
     Dosage: UNK
     Route: 065
     Dates: start: 20210602, end: 20210606
  7. DIPYRONE [Concomitant]
     Active Substance: DIPYRONE
     Indication: ARTHRALGIA
     Dosage: UNK
     Route: 065
     Dates: start: 20121001
  8. CLAVULIN [Concomitant]
     Active Substance: AMOXICILLIN\CLAVULANATE POTASSIUM
     Indication: CELLULITIS
     Dosage: UNK
     Route: 065
     Dates: start: 20210601, end: 20210601

REACTIONS (1)
  - Abscess neck [Recovered/Resolved]

NARRATIVE: CASE EVENT DATE: 20210620
